FAERS Safety Report 6298847-2 (Version None)
Quarter: 2009Q4

REPORT INFORMATION
  Report Type: 
  Country: None (occurrence: None)
  Receive Date: 20090805
  Receipt Date: 20090805
  Transmission Date: 20100525
  Serious: No
  Sender: FDA-Public Use
  Company Number: None

PATIENT
  Age: 51 Year
  Sex: Male

DRUGS (1)
  1. VYTORIN [Suspect]
     Dosage: 10/40 MG
     Dates: start: 20071207, end: 20080223

REACTIONS (2)
  - HEPATITIS ACUTE [None]
  - PROTEIN TOTAL DECREASED [None]
